FAERS Safety Report 6504067-6 (Version None)
Quarter: 2009Q4

REPORT INFORMATION
  Report Type: 
  Country: None (occurrence: None)
  Receive Date: 20091216
  Receipt Date: 20091216
  Transmission Date: 20100525
  Serious: Yes (Other)
  Sender: FDA-Public Use
  Company Number: None

PATIENT
  Age: 42 Year
  Sex: Female
  Weight: 72.5755 kg

DRUGS (1)
  1. PROCHLORPERAZINE 5MG UKN [Suspect]
     Indication: NAUSEA
     Dosage: 1 TABLET TID PO
     Route: 048
     Dates: start: 20091104, end: 20091104

REACTIONS (3)
  - ERYTHEMA [None]
  - HYPOAESTHESIA [None]
  - OEDEMA PERIPHERAL [None]
